FAERS Safety Report 24819150 (Version 1)
Quarter: 2025Q1

REPORT INFORMATION
  Report Type: Spontaneous
  Country: US (occurrence: None)
  Receive Date: 20250107
  Receipt Date: 20250107
  Transmission Date: 20250408
  Serious: Yes (Hospitalization)
  Sender: FDA-CTU
  Company Number: None

PATIENT
  Age: 75 Year
  Sex: Male
  Weight: 88.65 kg

DRUGS (1)
  1. TEMOZOLOMIDE [Suspect]
     Active Substance: TEMOZOLOMIDE
     Indication: Nervous system disorder
     Dosage: FREQUENCY : DAILY;?
     Route: 048
     Dates: start: 20241230, end: 20250103

REACTIONS (1)
  - Seizure [None]

NARRATIVE: CASE EVENT DATE: 20250104
